FAERS Safety Report 10145065 (Version 1)
Quarter: 2014Q2

REPORT INFORMATION
  Report Type: Spontaneous
  Country: GB (occurrence: GB)
  Receive Date: 20140501
  Receipt Date: 20140501
  Transmission Date: 20141212
  Serious: Yes (Life-Threatening, Other)
  Sender: FDA-Public Use
  Company Number: GB-ROCHE-1390012

PATIENT
  Age: 54 Year
  Sex: Male
  Weight: 91.12 kg

DRUGS (5)
  1. XOLAIR [Suspect]
     Indication: ASTHMA
     Route: 058
     Dates: start: 20131217
  2. XOLAIR [Suspect]
     Route: 058
     Dates: start: 20140408, end: 20140408
  3. AVAMYS [Concomitant]
     Route: 065
     Dates: start: 201404
  4. SYMBICORT [Concomitant]
  5. MONTELUKAST [Concomitant]
     Route: 065
     Dates: start: 2011

REACTIONS (7)
  - Syncope [Recovering/Resolving]
  - Pallor [Recovering/Resolving]
  - Cold sweat [Recovering/Resolving]
  - Swelling face [Unknown]
  - Dizziness [Recovering/Resolving]
  - Nausea [Recovering/Resolving]
  - Rash [Unknown]
